FAERS Safety Report 9092735 (Version 1)
Quarter: 2013Q1

REPORT INFORMATION
  Report Type: Spontaneous
  Country: US (occurrence: None)
  Receive Date: 20130213
  Receipt Date: 20130213
  Transmission Date: 20140127
  Serious: Yes (Other)
  Sender: FDA-Public Use
  Company Number: None

PATIENT
  Age: 54 Year
  Sex: Female
  Weight: 24.49 kg

DRUGS (1)
  1. EXESTEMANE [Suspect]
     Indication: AROMATASE INHIBITION THERAPY
     Route: 048
     Dates: start: 20120707, end: 20130123

REACTIONS (4)
  - Palpitations [None]
  - Headache [None]
  - Arthralgia [None]
  - Myalgia [None]
